FAERS Safety Report 4866701-6 (Version None)
Quarter: 2005Q4

REPORT INFORMATION
  Report Type: 
  Country: None (occurrence: None)
  Receive Date: 20051221
  Receipt Date: 20051207
  Transmission Date: 20060501
  Serious: Yes (Hospitalization)
  Sender: FDA-Public Use
  Company Number: S05-FRA-02280-01

PATIENT
  Age: 69 Year
  Sex: Male

DRUGS (5)
  1. CITALOPRAM HYDROBROMIDE [Suspect]
     Dates: start: 20050318, end: 20050421
  2. CIPROFLOXACIN [Concomitant]
     Dates: start: 20050318, end: 20050421
  3. PROPRANOLOL [Concomitant]
  4. CAPTEA [Concomitant]
  5. XATRAL (ALFUZOSIN) [Concomitant]

REACTIONS (10)
  - CHRONIC LYMPHOCYTIC LEUKAEMIA [None]
  - ENANTHEMA [None]
  - EOSINOPHILIA [None]
  - LOCALISED OEDEMA [None]
  - LYMPHADENOPATHY [None]
  - RASH [None]
  - RASH MACULO-PAPULAR [None]
  - RASH PUSTULAR [None]
  - SWELLING FACE [None]
  - TOXIC SKIN ERUPTION [None]
